FAERS Safety Report 8011122-0 (Version None)
Quarter: 2011Q4

REPORT INFORMATION
  Report Type: 
  Country: None (occurrence: None)
  Receive Date: 20111228
  Receipt Date: 20111219
  Transmission Date: 20120403
  Serious: Yes (Life-Threatening)
  Sender: FDA-Public Use
  Company Number: ES-CELGENEUS-144-50794-11120871

PATIENT
  Age: 69 Year
  Sex: Male

DRUGS (3)
  1. PLATELETS [Concomitant]
     Indication: ACUTE MYELOID LEUKAEMIA
     Route: 041
     Dates: start: 20111001, end: 20111001
  2. RED BLOOD CELLS [Concomitant]
     Indication: ACUTE MYELOID LEUKAEMIA
     Route: 041
     Dates: start: 20110701, end: 20110701
  3. VIDAZA [Suspect]
     Indication: ACUTE MYELOID LEUKAEMIA
     Dosage: 75 MILLIGRAM
     Route: 058
     Dates: start: 20110717, end: 20111021

REACTIONS (1)
  - ACUTE MYELOID LEUKAEMIA [None]
